FAERS Safety Report 9047092 (Version 1)
Quarter: 2013Q1

REPORT INFORMATION
  Report Type: Spontaneous
  Country: US (occurrence: None)
  Receive Date: 20130129
  Receipt Date: 20130129
  Transmission Date: 20140127
  Serious: Yes (Hospitalization)
  Sender: FDA-Public Use
  Company Number: None

PATIENT
  Age: 70 Year
  Sex: Female
  Weight: 50.53 kg

DRUGS (1)
  1. COLCRYS [Suspect]
     Route: 048
     Dates: start: 20120802

REACTIONS (5)
  - Hypertension [None]
  - Migraine [None]
  - Nausea [None]
  - Vomiting [None]
  - Diarrhoea [None]
